FAERS Safety Report 18257915 (Version 1)
Quarter: 2020Q3

REPORT INFORMATION
  Report Type: Spontaneous
  Country: US (occurrence: US)
  Receive Date: 20200911
  Receipt Date: 20200911
  Transmission Date: 20201103
  Serious: Yes (Hospitalization)
  Sender: FDA-Public Use
  Company Number: None

PATIENT
  Age: 41 Year
  Sex: Female
  Weight: 63.5 kg

DRUGS (1)
  1. METHIMAZOLE. [Suspect]
     Active Substance: METHIMAZOLE
     Indication: BASEDOW^S DISEASE
     Route: 048
     Dates: start: 20200723, end: 20200903

REACTIONS (5)
  - Febrile neutropenia [None]
  - Oropharyngeal pain [None]
  - Adverse drug reaction [None]
  - Agranulocytosis [None]
  - Myalgia [None]

NARRATIVE: CASE EVENT DATE: 20200903
